FAERS Safety Report 8045158-0 (Version None)
Quarter: 2012Q1

REPORT INFORMATION
  Report Type: 
  Country: None (occurrence: None)
  Receive Date: 20120113
  Receipt Date: 20110328
  Transmission Date: 20120608
  Serious: Yes (Hospitalization)
  Sender: FDA-Public Use
  Company Number: DE-ASTRAZENECA-2011SE11232

PATIENT
  Age: 25 Year
  Sex: Female

DRUGS (3)
  1. SOLVEX [Suspect]
     Route: 048
     Dates: start: 20101204
  2. SEROQUEL XR [Suspect]
     Route: 048
     Dates: start: 20110110, end: 20110113
  3. LYRICA [Concomitant]
     Route: 048
     Dates: start: 20101204

REACTIONS (1)
  - URINARY RETENTION [None]
